FAERS Safety Report 16071029 (Version 1)
Quarter: 2019Q1

REPORT INFORMATION
  Report Type: Spontaneous
  Country: US (occurrence: US)
  Receive Date: 20190212
  Receipt Date: 20190212
  Transmission Date: 20190418
  Serious: Yes (Hospitalization)
  Sender: FDA-Public Use
  Company Number: None

PATIENT
  Age: 59 Year
  Sex: Female
  Weight: 94.3 kg

DRUGS (4)
  1. CYCLOPHOSPHAMIDE. [Suspect]
     Active Substance: CYCLOPHOSPHAMIDE
     Dates: end: 20190115
  2. CYTARABINE. [Suspect]
     Active Substance: CYTARABINE
     Dates: end: 20190125
  3. MERCAPTOPURINE. [Suspect]
     Active Substance: MERCAPTOPURINE
     Dates: end: 20190128
  4. METHOTREXATE. [Suspect]
     Active Substance: METHOTREXATE
     Dates: end: 20190124

REACTIONS (10)
  - Febrile neutropenia [None]
  - Platelet count decreased [None]
  - Pancytopenia [None]
  - Swelling face [None]
  - Chills [None]
  - Gingivitis [None]
  - Pseudomonas infection [None]
  - Cellulitis [None]
  - Pseudomonal sepsis [None]
  - Tooth disorder [None]

NARRATIVE: CASE EVENT DATE: 20190130
